FAERS Safety Report 10252572 (Version 1)
Quarter: 2014Q2

REPORT INFORMATION
  Report Type: Spontaneous
  Country: LT (occurrence: LT)
  Receive Date: 20140623
  Receipt Date: 20140623
  Transmission Date: 20141212
  Serious: Yes (Hospitalization)
  Sender: FDA-Public Use
  Company Number: LT-ABBVIE-14P-234-1249917-00

PATIENT
  Age: 5 Year
  Sex: Male

DRUGS (1)
  1. KLACID [Suspect]
     Indication: PHARYNGITIS

REACTIONS (1)
  - Cardiac disorder [Recovering/Resolving]
